FAERS Safety Report 7209775-X (Version None)
Quarter: 2011Q1

REPORT INFORMATION
  Report Type: 
  Country: None (occurrence: None)
  Receive Date: 20110104
  Receipt Date: 20101229
  Transmission Date: 20110831
  Serious: Yes (Hospitalization)
  Sender: FDA-Public Use
  Company Number: BE-AMGEN-BELSP2010010969

PATIENT

DRUGS (1)
  1. VECTIBIX [Suspect]
     Indication: COLORECTAL CANCER STAGE IV
     Dosage: UNK UNK, Q2WK
     Route: 042
     Dates: start: 20090609

REACTIONS (2)
  - HERPES OPHTHALMIC [None]
  - CORNEAL PERFORATION [None]
